FAERS Safety Report 10014301 (Version 1)
Quarter: 2014Q1

REPORT INFORMATION
  Report Type: Spontaneous
  Country: US (occurrence: US)
  Receive Date: 20140317
  Receipt Date: 20140317
  Transmission Date: 20141002
  Serious: No
  Sender: FDA-Public Use
  Company Number: US-BIOGENIDEC-2014BI021517

PATIENT
  Sex: Female
  Weight: 56 kg

DRUGS (3)
  1. TECFIDERA [Suspect]
     Indication: MULTIPLE SCLEROSIS
     Route: 048
     Dates: start: 201311, end: 201402
  2. TECFIDERA [Suspect]
     Indication: MULTIPLE SCLEROSIS
     Route: 048
     Dates: start: 201403
  3. JUNEL FE [Concomitant]

REACTIONS (5)
  - Influenza [Unknown]
  - Weight decreased [Unknown]
  - Constipation [Unknown]
  - Diarrhoea [Unknown]
  - Abdominal discomfort [Unknown]
